FAERS Safety Report 6026455-7 (Version None)
Quarter: 2009Q1

REPORT INFORMATION
  Report Type: 
  Country: None (occurrence: None)
  Receive Date: 20090102
  Receipt Date: 20081223
  Transmission Date: 20090719
  Serious: Yes (Life-Threatening, Hospitalization)
  Sender: FDA-Public Use
  Company Number: ZA-PFIZER INC-2008098906

PATIENT

DRUGS (1)
  1. NORVASC [Suspect]
     Dosage: 100 TABLETS
     Route: 048
     Dates: start: 20081120, end: 20081120

REACTIONS (4)
  - HYPOTENSION [None]
  - OVERDOSE [None]
  - RESPIRATORY FAILURE [None]
  - SUICIDE ATTEMPT [None]
